FAERS Safety Report 9070201 (Version 3)
Quarter: 2013Q1

REPORT INFORMATION
  Report Type: Spontaneous
  Country: US (occurrence: US)
  Receive Date: 20130129
  Receipt Date: 20130329
  Transmission Date: 20140127
  Serious: Yes (Other)
  Sender: FDA-Public Use
  Company Number: US-B.I. PHARMACEUTICALS,INC./RIDGEFIELD-2013-BI-01808BP

PATIENT
  Age: 54 None
  Sex: Male
  Weight: 155.58 kg

DRUGS (4)
  1. SPIRIVA [Suspect]
     Indication: CHRONIC OBSTRUCTIVE PULMONARY DISEASE
     Dosage: 18 MCG
     Dates: start: 2009
  2. SPIRIVA [Suspect]
     Indication: ASTHMA
  3. ADVAIR [Concomitant]
     Indication: CHRONIC OBSTRUCTIVE PULMONARY DISEASE
     Dates: start: 2009
  4. ALBUTEROL [Concomitant]

REACTIONS (2)
  - Malignant melanoma stage I [Unknown]
  - Malignant melanoma stage IV [Unknown]
